FAERS Safety Report 19401375 (Version 1)
Quarter: 2021Q2

REPORT INFORMATION
  Report Type: Spontaneous
  Country: NL (occurrence: NL)
  Receive Date: 20210610
  Receipt Date: 20210610
  Transmission Date: 20210717
  Serious: Yes (Other)
  Sender: FDA-Public Use
  Company Number: NL-TEVA-2021-NL-1920306

PATIENT
  Age: 61 Year
  Sex: Female
  Weight: 91 kg

DRUGS (1)
  1. LEVOTHYROXINE TABLET 25UG (ZUUR) / BRAND NAME NOT SPECIFIED [Suspect]
     Active Substance: LEVOTHYROXINE
     Dosage: 3X TABLET = 75 MG 1X PER DAY,THERAPY END DATE ASKU
     Route: 065
     Dates: start: 202006

REACTIONS (3)
  - Blood pressure decreased [Recovered/Resolved]
  - Syncope [Recovered/Resolved]
  - Headache [Recovered/Resolved]

NARRATIVE: CASE EVENT DATE: 20210423
